FAERS Safety Report 19783330 (Version 1)
Quarter: 2021Q3

REPORT INFORMATION
  Report Type: Spontaneous
  Country: IT (occurrence: IT)
  Receive Date: 20210902
  Receipt Date: 20210902
  Transmission Date: 20211014
  Serious: Yes (Hospitalization, Other)
  Sender: FDA-Public Use
  Company Number: IT-REGENERON PHARMACEUTICALS, INC.-2021-81674

PATIENT

DRUGS (1)
  1. LIBTAYO [Suspect]
     Active Substance: CEMIPLIMAB-RWLC
     Indication: SKIN SQUAMOUS CELL CARCINOMA RECURRENT
     Dosage: 350 MG, Q3W
     Route: 042
     Dates: start: 202003

REACTIONS (5)
  - Posture abnormal [Recovering/Resolving]
  - Muscular weakness [Recovering/Resolving]
  - Myasthenic syndrome [Recovering/Resolving]
  - Dysphonia [Recovering/Resolving]
  - Dysphagia [Recovering/Resolving]
